FAERS Safety Report 13181249 (Version 2)
Quarter: 2017Q2

REPORT INFORMATION
  Report Type: Spontaneous
  Country: US (occurrence: US)
  Receive Date: 20170202
  Receipt Date: 20170417
  Transmission Date: 20170830
  Serious: Yes (Hospitalization, Other)
  Sender: FDA-Public Use
  Company Number: US-SMITH AND NEPHEW, INC-2016SMT01067

PATIENT
  Age: 64 Year
  Sex: Female
  Weight: 52.15 kg

DRUGS (2)
  1. REGRANEX [Suspect]
     Active Substance: BECAPLERMIN
     Indication: ULCER
     Dosage: UNK UNK, 1X/DAY
     Route: 061
     Dates: start: 201611, end: 2016
  2. LOMOTIL [Concomitant]
     Active Substance: ATROPINE SULFATE\DIPHENOXYLATE HYDROCHLORIDE
     Dosage: 2 TABLETS, 4X/DAY AS NEEDED

REACTIONS (6)
  - Exostosis [Recovered/Resolved]
  - Drug ineffective [Recovered/Resolved]
  - Application site reaction [Recovered/Resolved]
  - Application site odour [Recovered/Resolved]
  - Fluid retention [Recovered/Resolved]
  - Wound infection [Not Recovered/Not Resolved]

NARRATIVE: CASE EVENT DATE: 201611
